FAERS Safety Report 16961101 (Version 1)
Quarter: 2019Q4

REPORT INFORMATION
  Report Type: Spontaneous
  Country: US (occurrence: US)
  Receive Date: 20191025
  Receipt Date: 20191025
  Transmission Date: 20200122
  Serious: No
  Sender: FDA-Public Use
  Company Number: US-NVP-000031

PATIENT
  Age: 2 Year

DRUGS (1)
  1. SIROLIMUS. [Suspect]
     Active Substance: SIROLIMUS
     Indication: LYMPHANGIOMA
     Dosage: PER DAY
     Route: 065

REACTIONS (5)
  - Pyrexia [Unknown]
  - Product use issue [Unknown]
  - Lymphangioma [Unknown]
  - Condition aggravated [Unknown]
  - Product use in unapproved indication [Unknown]
